FAERS Safety Report 8591774-7 (Version None)
Quarter: 2012Q3

REPORT INFORMATION
  Report Type: 
  Country: None (occurrence: None)
  Receive Date: 20120730
  Receipt Date: 20120719
  Transmission Date: 20120928
  Serious: Yes (Hospitalization, Other)
  Sender: FDA-Public Use
  Company Number: 2012032913

PATIENT
  Age: 16 Year
  Sex: Male

DRUGS (2)
  1. ACIDUM ACETYLSALICYLICUM (ACETYLSALICYLIC ACID) [Concomitant]
  2. IMMUNE GLOBULIN INTRAVENOUS (HUMAN) [Suspect]
     Indication: KAWASAKI'S DISEASE
     Dosage: 2000 MG/KG QD, 2 G/KG, 2000 MG/KG QD, 2 G/KG (72 HRS AFTER INITIAL INJECTION)
     Route: 042

REACTIONS (1)
  - DRUG INEFFECTIVE FOR UNAPPROVED INDICATION [None]
